FAERS Safety Report 5092507-1 (Version None)
Quarter: 2006Q3

REPORT INFORMATION
  Report Type: 
  Country: None (occurrence: None)
  Receive Date: 20060830
  Receipt Date: 20060807
  Transmission Date: 20061208
  Serious: Yes (Death, Other)
  Sender: FDA-Public Use
  Company Number: DE-BRISTOL-MYERS SQUIBB COMPANY-13469820

PATIENT
  Age: 69 Year
  Sex: Female

DRUGS (4)
  1. ABILIFY [Suspect]
     Indication: PARANOIA
     Dates: start: 20060622
  2. ZELDOX [Concomitant]
     Dosage: DURATION OF THERAPY:  FOR MONTHS
  3. VENLAFAXINE HCL [Concomitant]
     Dosage: DURATION OF THERAPY:  FOR MONTHS
  4. KEPPRA [Concomitant]
     Dosage: DURATION OF THERAPY:  FOR MONTHS

REACTIONS (1)
  - PANCREATITIS NECROTISING [None]
